FAERS Safety Report 6278231-8 (Version None)
Quarter: 2009Q3

REPORT INFORMATION
  Report Type: 
  Country: None (occurrence: None)
  Receive Date: 20090722
  Receipt Date: 20090720
  Transmission Date: 20100115
  Serious: No
  Sender: FDA-Public Use
  Company Number: US-B.I. PHARMACEUTICALS,INC./RIDGEFIELD-2009-BP-08574BP

PATIENT
  Age: 56 Year
  Sex: Female

DRUGS (1)
  1. MOBIC [Suspect]

REACTIONS (1)
  - ADVERSE DRUG REACTION [None]
